FAERS Safety Report 4406585-3 (Version None)
Quarter: 2004Q3

REPORT INFORMATION
  Report Type: 
  Country: None (occurrence: None)
  Receive Date: 20040723
  Receipt Date: 20040618
  Transmission Date: 20050211
  Serious: Yes (Hospitalization, Other)
  Sender: FDA-Public Use
  Company Number: GB-GLAXOSMITHKLINE-B0336202A

PATIENT
  Age: 42 Year
  Sex: Male
  Weight: 95.5 kg

DRUGS (2)
  1. LAMICTAL [Suspect]
     Indication: EPILEPSY
     Dosage: 4.2G SINGLE DOSE
     Route: 048
     Dates: end: 20031201
  2. VALPROIC ACID [Concomitant]
     Indication: EPILEPSY
     Dosage: 800MG PER DAY
     Route: 048
     Dates: end: 20040101

REACTIONS (4)
  - COGNITIVE DISORDER [None]
  - MENTAL IMPAIRMENT [None]
  - OVERDOSE [None]
  - SPEECH DISORDER [None]
